FAERS Safety Report 17041064 (Version 1)
Quarter: 2019Q4

REPORT INFORMATION
  Report Type: Spontaneous
  Country: ID (occurrence: ID)
  Receive Date: 20191118
  Receipt Date: 20191118
  Transmission Date: 20200122
  Serious: Yes (Other)
  Sender: FDA-Public Use
  Company Number: ID-ALKEM LABORATORIES LIMITED-ID-ALKEM-2019-03646

PATIENT
  Age: 9 Year
  Sex: Female

DRUGS (8)
  1. ETHAMBUTOL [Suspect]
     Active Substance: ETHAMBUTOL HYDROCHLORIDE
     Indication: BONE TUBERCULOSIS
     Dosage: 20 MILLIGRAM/KILOGRAM, QD
     Route: 065
  2. ETHAMBUTOL [Suspect]
     Active Substance: ETHAMBUTOL HYDROCHLORIDE
     Indication: TUBERCULOSIS
  3. ISONIAZID. [Suspect]
     Active Substance: ISONIAZID
     Indication: TUBERCULOSIS
  4. PYRAZINAMIDE. [Suspect]
     Active Substance: PYRAZINAMIDE
     Indication: BONE TUBERCULOSIS
     Dosage: 35 MILLIGRAM/KILOGRAM, QD
     Route: 065
  5. RIFAMPICIN [Suspect]
     Active Substance: RIFAMPIN
     Indication: TUBERCULOSIS
  6. ISONIAZID. [Suspect]
     Active Substance: ISONIAZID
     Indication: BONE TUBERCULOSIS
     Dosage: 10 MILLIGRAM/KILOGRAM, QD
     Route: 065
  7. RIFAMPICIN [Suspect]
     Active Substance: RIFAMPIN
     Indication: BONE TUBERCULOSIS
     Dosage: 15 MILLIGRAM/KILOGRAM, QD
     Route: 065
  8. PYRAZINAMIDE. [Suspect]
     Active Substance: PYRAZINAMIDE
     Indication: TUBERCULOSIS

REACTIONS (1)
  - Drug-induced liver injury [Recovered/Resolved]
